APPROVED DRUG PRODUCT: PODOFILOX
Active Ingredient: PODOFILOX
Strength: 0.5%
Dosage Form/Route: SOLUTION;TOPICAL
Application: A075600 | Product #001 | TE Code: AT
Applicant: PADAGIS US LLC
Approved: Jan 29, 2002 | RLD: No | RS: No | Type: RX